FAERS Safety Report 23266516 (Version 1)
Quarter: 2023Q4

REPORT INFORMATION
  Report Type: Report from Study
  Country: ES (occurrence: ES)
  Receive Date: 20231206
  Receipt Date: 20231206
  Transmission Date: 20240109
  Serious: Yes (Other)
  Sender: FDA-Public Use
  Company Number: ES-ABBVIE-5501686

PATIENT
  Sex: Male

DRUGS (2)
  1. CARBIDOPA\LEVODOPA [Suspect]
     Active Substance: CARBIDOPA\LEVODOPA
     Indication: Parkinson^s disease
     Dosage: LAST ADMIN DATE- 2023
     Route: 050
     Dates: start: 20230531
  2. CARBIDOPA\LEVODOPA [Suspect]
     Active Substance: CARBIDOPA\LEVODOPA
     Dosage: FIRST ADMIN DATE- 2023
     Route: 050

REACTIONS (11)
  - Intervertebral disc protrusion [Unknown]
  - Freezing phenomenon [Not Recovered/Not Resolved]
  - Gait disturbance [Unknown]
  - Gait disturbance [Unknown]
  - Freezing phenomenon [Not Recovered/Not Resolved]
  - Therapeutic response shortened [Unknown]
  - Fall [Unknown]
  - Spinal fracture [Unknown]
  - Vertebral foraminal stenosis [Unknown]
  - Pituitary tumour benign [Unknown]
  - Back pain [Unknown]

NARRATIVE: CASE EVENT DATE: 20230101
